FAERS Safety Report 9298821 (Version 1)
Quarter: 2013Q2

REPORT INFORMATION
  Report Type: Spontaneous
  Country: US (occurrence: US)
  Receive Date: 20130520
  Receipt Date: 20130520
  Transmission Date: 20140414
  Serious: Yes (Other)
  Sender: FDA-Public Use
  Company Number: US-GLAXOSMITHKLINE-A1023234A

PATIENT
  Sex: Female

DRUGS (2)
  1. BENLYSTA [Suspect]
     Dosage: 10MGK MONTHLY
     Route: 042
  2. ANTIBIOTICS [Concomitant]

REACTIONS (4)
  - Abortion spontaneous [Unknown]
  - Uterine infection [Unknown]
  - Premature separation of placenta [Unknown]
  - Exposure during pregnancy [Unknown]
